FAERS Safety Report 7983539-1 (Version None)
Quarter: 2011Q4

REPORT INFORMATION
  Report Type: 
  Country: None (occurrence: None)
  Receive Date: 20111215
  Receipt Date: 20111213
  Transmission Date: 20120403
  Serious: Yes (Hospitalization)
  Sender: FDA-Public Use
  Company Number: GB-ROCHE-1021805

PATIENT
  Sex: Male

DRUGS (7)
  1. FOLIC ACID [Concomitant]
  2. LANSOPRAZOLE [Concomitant]
  3. METHOTREXATE [Concomitant]
  4. DIHYDROCODEINE BITARTRATE INJ [Concomitant]
  5. MABTHERA [Suspect]
     Indication: RHEUMATOID ARTHRITIS
     Dates: start: 20060912, end: 20101116
  6. NABUMETONE [Concomitant]
  7. PARACETAMOL [Concomitant]

REACTIONS (3)
  - DIZZINESS [None]
  - HEADACHE [None]
  - PARAESTHESIA [None]
